FAERS Safety Report 6922400-8 (Version None)
Quarter: 2010Q3

REPORT INFORMATION
  Report Type: 
  Country: None (occurrence: None)
  Receive Date: 20100813
  Receipt Date: 20100806
  Transmission Date: 20110219
  Serious: Yes (Hospitalization)
  Sender: FDA-Public Use
  Company Number: BR-JNJFOC-20100708939

PATIENT
  Age: 78 Year
  Sex: Male
  Weight: 78 kg

DRUGS (11)
  1. HALDOL [Suspect]
     Indication: DEMENTIA
     Dosage: 8 DROPS AT NIGHT
     Route: 065
  2. HALDOL [Suspect]
     Indication: ABNORMAL BEHAVIOUR
     Dosage: 8 DROPS AT NIGHT
     Route: 065
  3. MEMANTINE HCL [Suspect]
     Indication: DEMENTIA
     Route: 065
  4. EXELON [Suspect]
     Indication: DEMENTIA
     Dosage: DOSE OF 4.5
     Route: 065
  5. AKINETON [Suspect]
     Indication: PRODUCT USED FOR UNKNOWN INDICATION
     Route: 065
  6. OLANZAPINE [Suspect]
     Indication: PRODUCT USED FOR UNKNOWN INDICATION
     Dosage: 2.5
     Route: 065
  7. CLONAZEPAM [Suspect]
     Indication: PRODUCT USED FOR UNKNOWN INDICATION
     Route: 065
  8. ANTIHYPERTENSIVE [Concomitant]
     Route: 065
  9. METFORMIN HYDROCHLORIDE [Concomitant]
     Indication: DIABETES MELLITUS
     Route: 065
  10. STATINS [Concomitant]
     Indication: HYPERCHOLESTEROLAEMIA
     Route: 065
  11. VITAMIN TAB [Concomitant]
     Route: 065

REACTIONS (1)
  - BONE MARROW FAILURE [None]
